FAERS Safety Report 4338464-4 (Version None)
Quarter: 2004Q2

REPORT INFORMATION
  Report Type: 
  Country: None (occurrence: None)
  Receive Date: 20040409
  Receipt Date: 20040331
  Transmission Date: 20050107
  Serious: Yes (Death)
  Sender: FDA-Public Use
  Company Number: THQ2004A00344

PATIENT
  Age: 53 Year
  Sex: Female

DRUGS (11)
  1. ACTOS [Suspect]
     Dosage: 30 MG
     Dates: start: 20021101
  2. VIOXX [Concomitant]
  3. ZOCOR [Concomitant]
  4. MICARDIS [Concomitant]
  5. TEMAZEPAM [Concomitant]
  6. GRAVOL TAB [Concomitant]
  7. NOVOLIN (INSULIN HUMAN INJECTION, ISOPHANE) [Concomitant]
  8. CODEINE CONTIN (CODEINE CONTIN) [Concomitant]
  9. ZOLOFT [Concomitant]
  10. DIAZEM (DIAZEPAM) [Concomitant]
  11. LASIX [Concomitant]

REACTIONS (6)
  - INFLUENZA LIKE ILLNESS [None]
  - OBESITY [None]
  - PANCREATITIS ACUTE [None]
  - PANCREATITIS HAEMORRHAGIC [None]
  - PULMONARY CONGESTION [None]
  - PULMONARY OEDEMA [None]
